FAERS Safety Report 6743793-0 (Version None)
Quarter: 2010Q2

REPORT INFORMATION
  Report Type: 
  Country: None (occurrence: None)
  Receive Date: 20100527
  Receipt Date: 20100518
  Transmission Date: 20101027
  Serious: Yes (Life-Threatening)
  Sender: FDA-Public Use
  Company Number: JP-SANOFI-AVENTIS-2010SA015734

PATIENT
  Age: 79 Year
  Sex: Female
  Weight: 60 kg

DRUGS (7)
  1. PLAVIX [Suspect]
     Indication: STENT PLACEMENT
     Route: 048
     Dates: start: 20100120, end: 20100120
  2. PLAVIX [Suspect]
     Route: 048
     Dates: start: 20100121, end: 20100124
  3. HEPARIN [Concomitant]
     Indication: PERCUTANEOUS CORONARY INTERVENTION
     Dosage: CONTINUOUS INFUSION
     Route: 041
     Dates: start: 20100120
  4. ASPIRIN [Concomitant]
     Indication: ANGINA PECTORIS
     Route: 048
     Dates: start: 20100120
  5. FRANDOL [Concomitant]
     Indication: ANGINA PECTORIS
     Route: 062
     Dates: start: 20100120
  6. SIGMART [Concomitant]
     Indication: ANGINA PECTORIS
     Route: 048
     Dates: start: 20100120, end: 20100124
  7. ACINON [Concomitant]
     Indication: ANGINA PECTORIS
     Route: 048
     Dates: start: 20100120

REACTIONS (2)
  - RENAL FAILURE ACUTE [None]
  - RHABDOMYOLYSIS [None]
